FAERS Safety Report 5142835-6 (Version None)
Quarter: 2006Q4

REPORT INFORMATION
  Report Type: 
  Country: None (occurrence: None)
  Receive Date: 20061030
  Receipt Date: 20061016
  Transmission Date: 20070319
  Serious: Yes (Other)
  Sender: FDA-Public Use
  Company Number: US013240

PATIENT
  Age: 7 Year
  Sex: Male
  Weight: 24.9478 kg

DRUGS (3)
  1. MODAFINIL [Suspect]
     Indication: ATTENTION DEFICIT/HYPERACTIVITY DISORDER
     Dosage: MG DAILY ORAL
     Route: 048
     Dates: start: 20040330, end: 20040415
  2. MODAFINIL [Suspect]
     Indication: ATTENTION DEFICIT/HYPERACTIVITY DISORDER
     Dosage: MG DAILY ORAL
     Route: 048
     Dates: start: 20040423, end: 20040423
  3. AMOXIL [Suspect]
     Indication: VIRAL PHARYNGITIS
     Dosage: 500 MG BID ORAL
     Route: 048
     Dates: start: 20040414, end: 20040414

REACTIONS (7)
  - COXSACKIE VIRAL INFECTION [None]
  - DYSURIA [None]
  - ERYTHEMA MULTIFORME [None]
  - INFLAMMATION [None]
  - STEVENS-JOHNSON SYNDROME [None]
  - URETHRAL DISORDER [None]
  - VIRAL PHARYNGITIS [None]
